FAERS Safety Report 7001533-4 (Version None)
Quarter: 2010Q3

REPORT INFORMATION
  Report Type: 
  Country: None (occurrence: None)
  Receive Date: 20100920
  Receipt Date: 20100910
  Transmission Date: 20110219
  Serious: Yes (Other)
  Sender: FDA-Public Use
  Company Number: JP-AMGEN-KDC433620

PATIENT
  Age: 76 Year
  Sex: Female
  Weight: 35 kg

DRUGS (10)
  1. VECTIBIX [Suspect]
     Indication: COLORECTAL CANCER
     Route: 041
     Dates: start: 20100629, end: 20100713
  2. OXALIPLATIN [Concomitant]
     Indication: COLORECTAL CANCER
     Route: 041
     Dates: start: 20100629
  3. FLUOROURACIL [Concomitant]
     Indication: COLORECTAL CANCER
     Route: 041
     Dates: start: 20100401
  4. CALCIUM LEVOFOLINATE [Concomitant]
     Indication: COLORECTAL CANCER
     Route: 041
     Dates: start: 20100401
  5. PANCREAZE [Concomitant]
     Route: 048
  6. DEPAS [Concomitant]
     Route: 048
  7. PURSENNID [Concomitant]
     Route: 048
  8. LEUCON [Concomitant]
     Route: 048
  9. ANTIHISTAMINES [Concomitant]
     Indication: PROPHYLAXIS
     Route: 065
  10. CORTICOSTEROIDS [Concomitant]
     Indication: PROPHYLAXIS
     Route: 065

REACTIONS (1)
  - ORAL DISORDER [None]
